FAERS Safety Report 10562297 (Version 1)
Quarter: 2014Q4

REPORT INFORMATION
  Report Type: Spontaneous
  Country: US (occurrence: None)
  Receive Date: 20141103
  Receipt Date: 20141103
  Transmission Date: 20150529
  Serious: Yes (Other)
  Sender: FDA-Public Use
  Company Number: None

PATIENT
  Age: 75 Year
  Sex: Male
  Weight: 111.4 kg

DRUGS (3)
  1. HEPARIN [Suspect]
     Active Substance: HEPARIN SODIUM
     Indication: THROMBOCYTOPENIA
     Dosage: 20 UNITS OTHER SQ
     Route: 058
     Dates: start: 20110624, end: 20110711
  2. ENOXAPARIN [Suspect]
     Active Substance: ENOXAPARIN
     Indication: PULMONARY EMBOLISM
     Dosage: 100 MG BID SQ
     Dates: start: 20110618, end: 20110708
  3. ENOXAPARIN [Suspect]
     Active Substance: ENOXAPARIN
     Indication: DEEP VEIN THROMBOSIS
     Dosage: 100 MG BID SQ
     Dates: start: 20110618, end: 20110708

REACTIONS (2)
  - Thrombocytopenia [None]
  - Thrombosis [None]

NARRATIVE: CASE EVENT DATE: 20110711
